FAERS Safety Report 6516805-7 (Version None)
Quarter: 2009Q4

REPORT INFORMATION
  Report Type: 
  Country: None (occurrence: None)
  Receive Date: 20091223
  Receipt Date: 20091216
  Transmission Date: 20100525
  Serious: Yes (Other)
  Sender: FDA-Public Use
  Company Number: BR-ABBOTT-09P-020-0496054-00

PATIENT
  Sex: Female
  Weight: 72 kg

DRUGS (13)
  1. HUMIRA [Suspect]
     Indication: RHEUMATOID ARTHRITIS
     Route: 058
     Dates: start: 20081001
  2. FOLIC ACID [Concomitant]
     Indication: DRUG USE FOR UNKNOWN INDICATION
  3. ITRACONAZOLE [Concomitant]
     Indication: ONYCHOMYCOSIS
     Route: 048
     Dates: start: 20090101
  4. NIMESULIDE [Concomitant]
     Indication: RHEUMATOID ARTHRITIS
     Route: 048
  5. PREDNISONE [Concomitant]
     Indication: RHEUMATOID ARTHRITIS
     Route: 048
  6. POTASSIUM CARBONATE [Concomitant]
     Indication: OSTEOPENIA
  7. HYDROCHLOROTHIAZIDE [Concomitant]
     Indication: HYPERTENSION
     Route: 048
     Dates: start: 20050101
  8. CAPTOPRIL [Concomitant]
     Indication: HYPERTENSION
     Route: 048
     Dates: start: 20050101
  9. LEFLUNOMIDE [Concomitant]
     Indication: RHEUMATOID ARTHRITIS
     Route: 048
  10. FAMOTIDINE [Concomitant]
     Indication: RHEUMATOID ARTHRITIS
     Route: 048
  11. CHLOROQUIEN DIPHOSPHATE [Concomitant]
     Indication: RHEUMATOID ARTHRITIS
     Route: 048
  12. CALCIUM CARBONATE [Concomitant]
     Indication: BONE DISORDER
     Route: 048
     Dates: start: 20070101
  13. OMEPRAZOLE [Concomitant]
     Indication: GASTRIC DISORDER
     Route: 048
     Dates: start: 20060101

REACTIONS (12)
  - ALOPECIA [None]
  - ANAEMIA [None]
  - ASTHENIA [None]
  - DRUG EFFECT DECREASED [None]
  - EYE PAIN [None]
  - FOOT DEFORMITY [None]
  - HAEMORRHAGE [None]
  - HAEMORRHAGIC OVARIAN CYST [None]
  - INJECTION SITE SWELLING [None]
  - LEIOMYOMA [None]
  - MENORRHAGIA [None]
  - OVARIAN CYST [None]
